FAERS Safety Report 12898732 (Version 1)
Quarter: 2016Q4

REPORT INFORMATION
  Report Type: Spontaneous
  Country: DE (occurrence: DE)
  Receive Date: 20161101
  Receipt Date: 20161101
  Transmission Date: 20170207
  Serious: Yes (Other)
  Sender: FDA-Public Use
  Company Number: DE-DRREDDYS-GER/GER/16/0084317

PATIENT
  Sex: Male
  Weight: 70 kg

DRUGS (3)
  1. AMOXICILLIN AL 1000 FILMTABLETTEN [Suspect]
     Active Substance: AMOXICILLIN
     Indication: PRODUCT USED FOR UNKNOWN INDICATION
     Route: 048
  2. IBUFLAM 400 [Suspect]
     Active Substance: IBUPROFEN
     Indication: PRODUCT USED FOR UNKNOWN INDICATION
     Route: 048
     Dates: start: 20161020, end: 20161020
  3. IBUBETA 400 [Suspect]
     Active Substance: IBUPROFEN
     Indication: PRODUCT USED FOR UNKNOWN INDICATION
     Route: 048
     Dates: start: 20161020, end: 20161020

REACTIONS (2)
  - No adverse event [Unknown]
  - Drug abuse [Unknown]
